FAERS Safety Report 7936666-9 (Version None)
Quarter: 2011Q4

REPORT INFORMATION
  Report Type: 
  Country: None (occurrence: None)
  Receive Date: 20111123
  Receipt Date: 20111118
  Transmission Date: 20120403
  Serious: Yes (Disabling, Other)
  Sender: FDA-Public Use
  Company Number: FR-JNJFOC-20111006329

PATIENT
  Age: 66 Year
  Sex: Female

DRUGS (3)
  1. CLARITHROMYCIN [Concomitant]
     Indication: HELICOBACTER INFECTION
     Route: 065
     Dates: start: 20110222, end: 20110301
  2. PANTOPRAZOLE SODIUM [Concomitant]
     Indication: HELICOBACTER INFECTION
     Route: 065
     Dates: start: 20110222, end: 20110301
  3. LEVOFLOXACIN [Suspect]
     Indication: HELICOBACTER INFECTION
     Route: 048
     Dates: start: 20110222, end: 20110301

REACTIONS (2)
  - PERIARTHRITIS [None]
  - TENDONITIS [None]
